FAERS Safety Report 10754648 (Version 4)
Quarter: 2015Q2

REPORT INFORMATION
  Report Type: Report from Study
  Country: JP (occurrence: JP)
  Receive Date: 20150202
  Receipt Date: 20150601
  Transmission Date: 20150821
  Serious: Yes (Hospitalization)
  Sender: FDA-Public Use
  Company Number: JP-PFIZER INC-2015034949

PATIENT
  Age: 42 Year
  Sex: Female
  Weight: 52 kg

DRUGS (1)
  1. XALKORI [Suspect]
     Active Substance: CRIZOTINIB
     Indication: NON-SMALL CELL LUNG CANCER RECURRENT
     Dosage: 250 MG, 2X/DAY
     Route: 048
     Dates: start: 20121106, end: 20121122

REACTIONS (9)
  - Decreased appetite [Recovered/Resolved]
  - Nausea [Recovered/Resolved]
  - Pericardial effusion [Recovered/Resolved]
  - Diarrhoea [Not Recovered/Not Resolved]
  - C-reactive protein increased [Recovered/Resolved]
  - Malaise [Recovered/Resolved]
  - Vomiting [Recovered/Resolved]
  - Pleural effusion [Recovered/Resolved]
  - Electrocardiogram T wave abnormal [Recovered/Resolved]

NARRATIVE: CASE EVENT DATE: 20121106
